FAERS Safety Report 21117274 (Version 1)
Quarter: 2022Q3

REPORT INFORMATION
  Report Type: Report from Study
  Country: PL (occurrence: None)
  Receive Date: 20220722
  Receipt Date: 20220722
  Transmission Date: 20221027
  Serious: Yes (Death, Life-Threatening, Other)
  Sender: FDA-Public Use
  Company Number: PL-ADIENNEP-2022AD000575

PATIENT
  Age: 10 Year
  Sex: Male

DRUGS (6)
  1. TREOSULFAN [Suspect]
     Active Substance: TREOSULFAN
     Indication: Allogenic stem cell transplantation
     Dosage: 42 G/M2 (42G/M2)
  2. FLUDARABINE [Suspect]
     Active Substance: FLUDARABINE PHOSPHATE
     Indication: Allogenic stem cell transplantation
     Dosage: 5 X 30 MG/M2
  3. THIOTEPA [Suspect]
     Active Substance: THIOTEPA
     Indication: Allogenic stem cell transplantation
     Dosage: 2 X 5 MG/KG BW
  4. GRAFALON [Suspect]
     Active Substance: LAPINE T-LYMPHOCYTE IMMUNE GLOBULIN
     Indication: Allogenic stem cell transplantation
     Dosage: 45 MG/KG BW
  5. CYCLOSPORINE [Suspect]
     Active Substance: CYCLOSPORINE
     Indication: Prophylaxis against graft versus host disease
     Dosage: FROM DAY -1 ()
  6. METHOTREXATE [Suspect]
     Active Substance: METHOTREXATE
     Indication: Prophylaxis against graft versus host disease
     Dosage: ON DAYS +1, +3 AND +6 ()

REACTIONS (11)
  - Mucosal inflammation [Unknown]
  - Pyrexia [Unknown]
  - BK virus infection [Unknown]
  - Viral haemorrhagic cystitis [Unknown]
  - Acute graft versus host disease in skin [Unknown]
  - Acute graft versus host disease in intestine [Unknown]
  - Acute respiratory failure [Unknown]
  - Pulmonary alveolar haemorrhage [Unknown]
  - Multiple organ dysfunction syndrome [Fatal]
  - Gastrointestinal haemorrhage [Unknown]
  - Angiopathy [Unknown]
